FAERS Safety Report 24765635 (Version 1)
Quarter: 2024Q4

REPORT INFORMATION
  Report Type: Spontaneous
  Country: US (occurrence: None)
  Receive Date: 20241220
  Receipt Date: 20241220
  Transmission Date: 20250115
  Serious: Yes (Hospitalization)
  Sender: Public
  Company Number: None

PATIENT
  Sex: Female

DRUGS (1)
  1. VIGABATRIN [Suspect]
     Active Substance: VIGABATRIN
     Indication: Epilepsy
     Dosage: OTHER QUANTITY : AS DIRECTED;?FREQUENCY : TWICE A DAY;?
     Route: 048
     Dates: start: 202408

REACTIONS (2)
  - Muscle spasms [None]
  - Retinal dystrophy [None]
